FAERS Safety Report 13846997 (Version 17)
Quarter: 2018Q4

REPORT INFORMATION
  Report Type: Spontaneous
  Country: CA (occurrence: CA)
  Receive Date: 20170808
  Receipt Date: 20181025
  Transmission Date: 20190204
  Serious: Yes (Other)
  Sender: FDA-Public Use
  Company Number: CA-CELLTRION INC.-2017CA004103

PATIENT

DRUGS (14)
  1. INFLECTRA [Suspect]
     Active Substance: INFLIXIMAB-DYYB
     Dosage: 400 MG, EVERY 5 WEEKS
     Route: 042
     Dates: start: 20180109
  2. INFLECTRA [Suspect]
     Active Substance: INFLIXIMAB-DYYB
     Dosage: 400 MG, CYCLIC(THEN EVERY 5 WEEKS)
     Route: 042
     Dates: start: 20180316
  3. METHOTREXATE. [Concomitant]
     Active Substance: METHOTREXATE
     Dosage: UNK
     Route: 065
  4. DIPHENHYDRAMINE. [Concomitant]
     Active Substance: DIPHENHYDRAMINE
     Dosage: UNK
  5. INFLECTRA [Suspect]
     Active Substance: INFLIXIMAB-DYYB
     Dosage: 400 MG, (THEN EVERY 5 WEEKS)
     Route: 042
     Dates: start: 20180627
  6. ACETAMINOPHEN. [Concomitant]
     Active Substance: ACETAMINOPHEN
     Dosage: UNK
  7. INFLECTRA [Suspect]
     Active Substance: INFLIXIMAB-DYYB
     Dosage: 300 MG EVERY 5 WEEKS
     Route: 042
     Dates: start: 20170925, end: 20171030
  8. MELOXICAM ACTAVIS [Concomitant]
     Dosage: UNK
     Route: 065
  9. INFLECTRA [Suspect]
     Active Substance: INFLIXIMAB-DYYB
     Dosage: 400 MG, EVERY 5 WEEKS
     Route: 042
     Dates: start: 20171205
  10. INFLECTRA [Suspect]
     Active Substance: INFLIXIMAB-DYYB
     Dosage: 400 MG, CYCLIC(THEN EVERY 5 WEEKS)
     Route: 042
     Dates: start: 20180525
  11. HYDROCORTISONE. [Concomitant]
     Active Substance: HYDROCORTISONE
     Dosage: UNK
  12. INFLECTRA [Suspect]
     Active Substance: INFLIXIMAB-DYYB
     Dosage: 400 MG, CYCLIC (THEN EVERY 5 WEEKS)
     Route: 042
     Dates: start: 20180718
  13. INFLECTRA [Suspect]
     Active Substance: INFLIXIMAB-DYYB
     Indication: RHEUMATOID ARTHRITIS
     Dosage: 300 MG, ON WEEKS 0, 2, 6 THEN EVERY 6 WEEKS
     Route: 042
     Dates: start: 20170327, end: 20170822
  14. SULFASALAZINE. [Concomitant]
     Active Substance: SULFASALAZINE
     Dosage: UNK
     Route: 065

REACTIONS (17)
  - Product use issue [Unknown]
  - Arthralgia [Not Recovered/Not Resolved]
  - Blood pressure fluctuation [Not Recovered/Not Resolved]
  - Tendon rupture [Not Recovered/Not Resolved]
  - Nasal congestion [Unknown]
  - Bone pain [Unknown]
  - Drug ineffective [Unknown]
  - Postoperative wound infection [Unknown]
  - Wound infection [Recovering/Resolving]
  - Product use issue [Unknown]
  - Nasopharyngitis [Unknown]
  - Therapeutic response shortened [Unknown]
  - Malaise [Unknown]
  - Joint swelling [Unknown]
  - Red blood cell count decreased [Unknown]
  - Pain [Not Recovered/Not Resolved]
  - Sinusitis [Unknown]

NARRATIVE: CASE EVENT DATE: 20170501
